FAERS Safety Report 13739203 (Version 1)
Quarter: 2017Q3

REPORT INFORMATION
  Report Type: Report from Study
  Country: US (occurrence: US)
  Receive Date: 20170710
  Receipt Date: 20170710
  Transmission Date: 20171127
  Serious: No
  Sender: FDA-Public Use
  Company Number: US-SAOL THERAPEUTICS-2017SAO00777

PATIENT
  Age: 64 Year
  Sex: Female
  Weight: 72.56 kg

DRUGS (18)
  1. DILAUDID [Suspect]
     Active Substance: HYDROMORPHONE HYDROCHLORIDE
     Dosage: 4.5001 MG, \DAY
     Route: 037
     Dates: start: 20160107
  2. CLONIDINE. [Suspect]
     Active Substance: CLONIDINE
     Dosage: 328.68 ?G, \DAY
     Route: 037
     Dates: start: 20151105, end: 20160107
  3. CLONIDINE. [Suspect]
     Active Substance: CLONIDINE
     Dosage: 360.01 UNK, UNK
     Route: 037
     Dates: start: 20160107
  4. CLONIDINE. [Suspect]
     Active Substance: CLONIDINE
     Dosage: 395.96 ?G, \DAY
     Route: 037
     Dates: start: 20160414, end: 20160414
  5. CLONIDINE. [Suspect]
     Active Substance: CLONIDINE
     Dosage: 360.08 ?G, \DAY
     Route: 037
     Dates: start: 20160414
  6. CLONIDINE. [Suspect]
     Active Substance: CLONIDINE
     Dosage: 360.08 ?G, \DAY
     Route: 037
     Dates: start: 20160831
  7. COMPOUNDED BACLOFEN [Suspect]
     Active Substance: BACLOFEN
     Dosage: 273.90 ?G, \DAY
     Route: 037
     Dates: start: 20151105, end: 20160107
  8. COMPOUNDED BACLOFEN [Suspect]
     Active Substance: BACLOFEN
     Dosage: 300.06 ?G, \DAY
     Route: 037
     Dates: start: 20160831
  9. COMPOUNDED BACLOFEN [Suspect]
     Active Substance: BACLOFEN
     Dosage: 300.06 ?G, \DAY
     Route: 037
     Dates: start: 20160414
  10. COMPOUNDED BACLOFEN [Suspect]
     Active Substance: BACLOFEN
     Dosage: 330.11 ?G, \DAY
     Route: 037
     Dates: start: 20160804, end: 20160831
  11. DILAUDID [Suspect]
     Active Substance: HYDROMORPHONE HYDROCHLORIDE
     Dosage: 4.9496 MG, \DAY
     Route: 037
     Dates: start: 20160414, end: 20160414
  12. DILAUDID [Suspect]
     Active Substance: HYDROMORPHONE HYDROCHLORIDE
     Dosage: 4.5010 MG, \DAY
     Route: 037
     Dates: start: 20160831
  13. CLONIDINE. [Suspect]
     Active Substance: CLONIDINE
     Dosage: 396.14 ?G, \DAY
     Route: 037
     Dates: start: 20160804, end: 20160831
  14. COMPOUNDED BACLOFEN [Suspect]
     Active Substance: BACLOFEN
     Dosage: 300.00 ?G, \DAY
     Route: 037
     Dates: start: 20160107
  15. DILAUDID [Suspect]
     Active Substance: HYDROMORPHONE HYDROCHLORIDE
     Dosage: 4.1085 MG, \DAY
     Route: 037
     Dates: start: 20151105, end: 20160107
  16. DILAUDID [Suspect]
     Active Substance: HYDROMORPHONE HYDROCHLORIDE
     Dosage: 4.5010 MG, \DAY
     Route: 037
     Dates: start: 20160414
  17. DILAUDID [Suspect]
     Active Substance: HYDROMORPHONE HYDROCHLORIDE
     Dosage: 4.9517 MG, \DAY
     Route: 037
     Dates: start: 20160804, end: 20160831
  18. COMPOUNDED BACLOFEN [Suspect]
     Active Substance: BACLOFEN
     Dosage: 329.97 ?G, \DAY
     Route: 037
     Dates: start: 20160414, end: 20160414

REACTIONS (6)
  - Overdose [Recovered/Resolved]
  - Pain [Not Recovered/Not Resolved]
  - Hyperaesthesia [Not Recovered/Not Resolved]
  - Implant site pain [Recovered/Resolved]
  - Asthenia [Recovered/Resolved]
  - Implant site mass [Not Recovered/Not Resolved]

NARRATIVE: CASE EVENT DATE: 20160107
